FAERS Safety Report 4855924-8 (Version None)
Quarter: 2005Q4

REPORT INFORMATION
  Report Type: 
  Country: None (occurrence: None)
  Receive Date: 20051216
  Receipt Date: 20051206
  Transmission Date: 20060501
  Serious: Yes (Hospitalization)
  Sender: FDA-Public Use
  Company Number: FR-GLAXOSMITHKLINE-B0402780A

PATIENT
  Age: 85 Year
  Sex: Female

DRUGS (6)
  1. DEROXAT [Suspect]
     Dosage: 10MG PER DAY
     Route: 048
     Dates: start: 20051001, end: 20051012
  2. VASTAREL [Concomitant]
     Route: 048
  3. XANAX [Concomitant]
     Route: 048
  4. IDEOS [Concomitant]
     Route: 048
  5. FOSAMAX [Concomitant]
     Route: 048
  6. ARIMIDEX [Concomitant]
     Indication: BREAST CANCER
     Route: 048

REACTIONS (4)
  - CONFUSIONAL STATE [None]
  - HYPONATRAEMIA [None]
  - INAPPROPRIATE ANTIDIURETIC HORMONE SECRETION [None]
  - URINE SODIUM INCREASED [None]
